FAERS Safety Report 4564700-5 (Version None)
Quarter: 2005Q1

REPORT INFORMATION
  Report Type: 
  Country: None (occurrence: None)
  Receive Date: 20050125
  Receipt Date: 20050111
  Transmission Date: 20050727
  Serious: No
  Sender: FDA-Public Use
  Company Number: 05H-062-0286530

PATIENT
  Age: 18 Year
  Sex: Female

DRUGS (1)
  1. HEPARIN SODIUM [Suspect]
     Indication: DRUG USE FOR UNKNOWN INDICATION

REACTIONS (6)
  - DISEASE RECURRENCE [None]
  - HEPARIN-INDUCED THROMBOCYTOPENIA [None]
  - PNEUMONIA [None]
  - PULMONARY EMBOLISM [None]
  - PULMONARY INFARCTION [None]
  - THROMBOSIS [None]
